FAERS Safety Report 4365183-0 (Version None)
Quarter: 2004Q2

REPORT INFORMATION
  Report Type: 
  Country: None (occurrence: None)
  Receive Date: 20040525
  Receipt Date: 20040303
  Transmission Date: 20050107
  Serious: No
  Sender: FDA-Public Use
  Company Number: PHEH2004US02704

PATIENT
  Age: 42 Year
  Sex: Female

DRUGS (2)
  1. ZELNORM [Suspect]
     Indication: IRRITABLE BOWEL SYNDROME
     Dosage: 6 MG, BID, ORAL
     Route: 048
     Dates: start: 20040301
  2. EFFEXOR [Suspect]
     Dosage: UNKNOWN
     Route: 065

REACTIONS (2)
  - PARAESTHESIA [None]
  - VERTIGO [None]
